FAERS Safety Report 7941016-8 (Version None)
Quarter: 2011Q4

REPORT INFORMATION
  Report Type: 
  Country: None (occurrence: None)
  Receive Date: 20111128
  Receipt Date: 20111117
  Transmission Date: 20120403
  Serious: Yes (Hospitalization, Other)
  Sender: FDA-Public Use
  Company Number: DE-BRISTOL-MYERS SQUIBB COMPANY-16141319

PATIENT
  Age: 57 Year
  Weight: 80 kg

DRUGS (9)
  1. BISOPROLOL FUMARATE [Concomitant]
     Indication: TACHYCARDIA
     Dosage: TABS
     Dates: start: 20040212
  2. SACCHAROMYCES BOULARDII [Concomitant]
     Indication: DIARRHOEA
     Dosage: CAPS
     Dates: start: 20110908, end: 20110926
  3. ONGLYZA [Suspect]
     Indication: DIABETES MELLITUS
     Dates: start: 20110818, end: 20110926
  4. ALLOPURINOL [Concomitant]
     Indication: HYPERURICAEMIA
     Dosage: TABS
     Dates: start: 20070531, end: 20110926
  5. SIMVASTATIN [Concomitant]
     Indication: HYPERCHOLESTEROLAEMIA
     Dosage: TABS
     Dates: start: 20110308
  6. OMEPRAZOLE [Concomitant]
     Indication: GASTROOESOPHAGEAL REFLUX DISEASE
     Dosage: FORMULATION : CAPS
     Dates: start: 20040212, end: 20110926
  7. METFORMIN HCL [Suspect]
     Dosage: 1DF:850UNM
     Dates: start: 20110809
  8. XIPAMIDE [Concomitant]
     Indication: CARDIAC FAILURE CONGESTIVE
     Dosage: TABS
     Dates: start: 20110308, end: 20110926
  9. LISINOPRIL [Concomitant]
     Indication: HYPERTENSION
     Dates: start: 20040212, end: 20110926

REACTIONS (3)
  - RENAL FAILURE [None]
  - DIARRHOEA [None]
  - ABDOMINAL PAIN UPPER [None]
